FAERS Safety Report 4509644-X (Version None)
Quarter: 2004Q4

REPORT INFORMATION
  Report Type: 
  Country: None (occurrence: None)
  Receive Date: 20041124
  Receipt Date: 20041021
  Transmission Date: 20050328
  Serious: Yes (Death, Hospitalization)
  Sender: FDA-Public Use
  Company Number: US-BRISTOL-MYERS SQUIBB COMPANY-12739462

PATIENT
  Age: 13 Year
  Sex: Male
  Weight: 91 kg

DRUGS (2)
  1. ABILIFY [Suspect]
     Indication: IMPULSE-CONTROL DISORDER
     Route: 048
  2. RITALIN [Concomitant]

REACTIONS (8)
  - DEATH [None]
  - DIABETIC KETOACIDOSIS [None]
  - GYNAECOMASTIA [None]
  - INFECTION [None]
  - POLYURIA [None]
  - SEPSIS [None]
  - TREATMENT NONCOMPLIANCE [None]
  - VOMITING [None]
